FAERS Safety Report 24636288 (Version 1)
Quarter: 2024Q4

REPORT INFORMATION
  Report Type: Spontaneous
  Country: CA (occurrence: CA)
  Receive Date: 20241119
  Receipt Date: 20241119
  Transmission Date: 20250115
  Serious: Yes (Other)
  Sender: CSL BEHRING
  Company Number: CA-BEH-2024185388

PATIENT
  Age: 68 Year
  Sex: Female
  Weight: 55 kg

DRUGS (4)
  1. ALBUMIN HUMAN [Suspect]
     Active Substance: ALBUMIN HUMAN
     Indication: Coronary artery bypass
     Dosage: 100 ML
     Route: 065
  2. ALBUMIN HUMAN [Suspect]
     Active Substance: ALBUMIN HUMAN
     Indication: Surgery
     Dosage: UNK
     Route: 065
  3. CISATRACURIUM [Concomitant]
     Active Substance: CISATRACURIUM
  4. PROPOFOL [Concomitant]
     Active Substance: PROPOFOL

REACTIONS (2)
  - Skin reaction [Recovered/Resolved]
  - Hypotension [Recovered/Resolved]
